FAERS Safety Report 6784810-1 (Version None)
Quarter: 2010Q2

REPORT INFORMATION
  Report Type: 
  Country: None (occurrence: None)
  Receive Date: 20100622
  Receipt Date: 20100618
  Transmission Date: 20101027
  Serious: Yes (Death)
  Sender: FDA-Public Use
  Company Number: PHHY2010CO39838

PATIENT
  Sex: Male

DRUGS (1)
  1. DIOVAN HCT [Suspect]
     Dosage: 160/25 MG, 1 TABLET PER DAY
     Route: 048
     Dates: start: 20040606

REACTIONS (5)
  - DEATH [None]
  - DIARRHOEA [None]
  - FALL [None]
  - GASTRITIS [None]
  - VOMITING [None]
